FAERS Safety Report 8967874 (Version 1)
Quarter: 2012Q4

REPORT INFORMATION
  Report Type: 
  Country: NL (occurrence: NL)
  Receive Date: 20121217
  Receipt Date: 20121217
  Transmission Date: 20130627
  Serious: Yes (Hospitalization)
  Sender: FDA-Public Use
  Company Number: NL-ABBOTT-12P-114-0991803-00

PATIENT
  Age: 48 Year
  Sex: Male
  Weight: 104 kg

DRUGS (5)
  1. HUMIRA [Suspect]
     Indication: PSORIATIC ARTHROPATHY
     Route: 058
     Dates: start: 20110503, end: 20120419
  2. METHOTREXATE [Concomitant]
     Indication: RHEUMATOID ARTHRITIS
  3. AMLODIPIN [Concomitant]
     Indication: BLOOD PRESSURE INCREASED
     Dosage: 1 x 10mg
     Route: 048
  4. PERINDOPRIL [Concomitant]
     Indication: BLOOD PRESSURE INCREASED
     Dosage: 1 x 5mg
     Route: 048
  5. PIROXICAM [Concomitant]
     Indication: PAIN
     Dosage: 1 x 2mg
     Route: 048
     Dates: start: 20121028

REACTIONS (2)
  - Mesenteric panniculitis [Recovered/Resolved]
  - Lipids increased [Not Recovered/Not Resolved]
